FAERS Safety Report 20649747 (Version 1)
Quarter: 2022Q1

REPORT INFORMATION
  Report Type: Spontaneous
  Country: US (occurrence: US)
  Receive Date: 20220329
  Receipt Date: 20220329
  Transmission Date: 20220423
  Serious: No
  Sender: FDA-Public Use
  Company Number: US-PERRIGO-21US006317

PATIENT
  Age: 69 Year
  Sex: Male
  Weight: 88.889 kg

DRUGS (7)
  1. ACETAMINOPHEN [Suspect]
     Active Substance: ACETAMINOPHEN
     Indication: Oropharyngeal pain
     Dosage: 1300 MG, SINGLE AT 2100
     Route: 048
     Dates: start: 20210508, end: 20210508
  2. ACETAMINOPHEN [Suspect]
     Active Substance: ACETAMINOPHEN
     Dosage: 1300 MG, SINGLE AT 0300
     Route: 048
     Dates: start: 20210509, end: 20210509
  3. ACETAMINOPHEN [Suspect]
     Active Substance: ACETAMINOPHEN
     Dosage: 1300 MG, SINGLE AT 0500
     Route: 048
     Dates: start: 20210509, end: 20210509
  4. ACETAMINOPHEN [Suspect]
     Active Substance: ACETAMINOPHEN
     Dosage: 650 MG, SINGLE
     Route: 048
     Dates: start: 20210509, end: 20210509
  5. UNSPECIFIED INGREDIENT [Concomitant]
     Active Substance: UNSPECIFIED INGREDIENT
     Indication: Hypertension
     Dosage: UNKNOWN, UNKNOWN
     Route: 065
  6. UNSPECIFIED INGREDIENT [Concomitant]
     Active Substance: UNSPECIFIED INGREDIENT
     Indication: Depression
     Dosage: UNKNOWN, UNKNOWN
     Route: 065
  7. LIPID MODIFYING AGENTS, PLAIN [Concomitant]
     Indication: Blood cholesterol increased
     Dosage: UNKNOWN, UNKNOWN
     Route: 065

REACTIONS (5)
  - Abdominal pain [Not Recovered/Not Resolved]
  - Chromaturia [Recovered/Resolved]
  - Drug ineffective [Unknown]
  - Inappropriate schedule of product administration [Recovered/Resolved]
  - Incorrect dose administered [Recovered/Resolved]

NARRATIVE: CASE EVENT DATE: 20210508
